FAERS Safety Report 10170005 (Version 2)
Quarter: 2014Q2

REPORT INFORMATION
  Report Type: Report from Study
  Country: BE (occurrence: BE)
  Receive Date: 20140513
  Receipt Date: 20140619
  Transmission Date: 20141212
  Serious: Yes (Other)
  Sender: FDA-Public Use
  Company Number: BE-BAYER-2014-066169

PATIENT
  Age: 42 Year
  Sex: Male

DRUGS (6)
  1. BETAFERON [Suspect]
     Indication: MULTIPLE SCLEROSIS
     Dosage: 1 ML, QOD
     Dates: start: 19981001
  2. ZOPICLONE [Concomitant]
  3. SEROQUEL [Concomitant]
  4. MAGNESIUM [Concomitant]
  5. VITAMIN D [Concomitant]
  6. VITAMIN B COMPLEX [Concomitant]

REACTIONS (3)
  - Pulmonary sarcoidosis [None]
  - Influenza like illness [None]
  - Fatigue [None]
